FAERS Safety Report 12630658 (Version 5)
Quarter: 2016Q3

REPORT INFORMATION
  Report Type: Spontaneous
  Country: US (occurrence: US)
  Receive Date: 20160808
  Receipt Date: 20160930
  Transmission Date: 20161109
  Serious: No
  Sender: FDA-Public Use
  Company Number: US-PFIZER INC-2016375107

PATIENT
  Age: 41 Year
  Sex: Female

DRUGS (3)
  1. SULFASALAZINE. [Suspect]
     Active Substance: SULFASALAZINE
     Dosage: 1000 MG, DAILY (500MG X 2, QD)
     Route: 048
     Dates: start: 201407, end: 20160729
  2. SULFASALAZINE. [Suspect]
     Active Substance: SULFASALAZINE
     Dosage: 500 MG, UNK
  3. SULFASALAZINE. [Suspect]
     Active Substance: SULFASALAZINE
     Dosage: 500 MG, UNK

REACTIONS (4)
  - Nasal discomfort [Unknown]
  - Product odour abnormal [Unknown]
  - Occupational exposure to product [Unknown]
  - Headache [Unknown]

NARRATIVE: CASE EVENT DATE: 20160729
